FAERS Safety Report 6262061-7 (Version None)
Quarter: 2009Q3

REPORT INFORMATION
  Report Type: 
  Country: None (occurrence: None)
  Receive Date: 20090707
  Receipt Date: 20090707
  Transmission Date: 20100115
  Serious: No
  Sender: FDA-Public Use
  Company Number: None

PATIENT
  Age: 36 Year
  Sex: Female
  Weight: 61.2356 kg

DRUGS (2)
  1. TOPAMAX [Suspect]
     Indication: MIGRAINE
     Dosage: 25MG -25MG AM, 25MG HS- DAILY PO
     Route: 048
     Dates: start: 20070207, end: 20070214
  2. TOPAMAX [Suspect]
     Indication: MIGRAINE
     Dosage: 75MG -25MG AM, 50MG HS- DAILY PO
     Route: 048
     Dates: start: 20070215, end: 20070221

REACTIONS (3)
  - DEPRESSION [None]
  - HALLUCINATION, VISUAL [None]
  - PRODUCT SUBSTITUTION ISSUE [None]
